FAERS Safety Report 16684748 (Version 2)
Quarter: 2019Q3

REPORT INFORMATION
  Report Type: Spontaneous
  Country: GB (occurrence: GB)
  Receive Date: 20190808
  Receipt Date: 20190814
  Transmission Date: 20191004
  Serious: Yes (Other)
  Sender: FDA-Public Use
  Company Number: GB-MYLANLABS-2019M1073035

PATIENT
  Age: 60 Year
  Sex: Male

DRUGS (6)
  1. LORATADINE. [Interacting]
     Active Substance: LORATADINE
     Indication: LACRIMATION INCREASED
     Dosage: 10 MILLIGRAM(THE PATIENT RESUMED LORATADINE ABOUT 5 WEEKS AGO.)
     Route: 065
     Dates: start: 20190222
  2. AVAMYS [Concomitant]
     Active Substance: FLUTICASONE FUROATE
     Indication: EUSTACHIAN TUBE DYSFUNCTION
     Dosage: UNK
     Dates: end: 20190222
  3. PROZAC [Interacting]
     Active Substance: FLUOXETINE HYDROCHLORIDE
     Indication: DEPRESSION
     Dosage: UNK
  4. FLUOXETINE [Suspect]
     Active Substance: FLUOXETINE HYDROCHLORIDE
     Indication: DEPRESSION
     Dosage: PATIENT WAS TAKING FLUOXETINE 20 MG CAPSULES SINCE MANY YEARS
     Route: 048
  5. LORATADINE. [Interacting]
     Active Substance: LORATADINE
     Indication: EYE PRURITUS
     Dosage: 10 MILLIGRAM
  6. LORATADINE. [Interacting]
     Active Substance: LORATADINE
     Dosage: UNK

REACTIONS (5)
  - Epilepsy [Recovered/Resolved]
  - Seizure [Recovered/Resolved]
  - Muscle spasms [Recovered/Resolved]
  - Sleep disorder [Unknown]
  - Drug interaction [Unknown]

NARRATIVE: CASE EVENT DATE: 20190202
